FAERS Safety Report 6409404-9 (Version None)
Quarter: 2009Q4

REPORT INFORMATION
  Report Type: 
  Country: None (occurrence: None)
  Receive Date: 20091021
  Receipt Date: 20091012
  Transmission Date: 20100525
  Serious: Yes (Other)
  Sender: FDA-Public Use
  Company Number: JP-MERCK-0909USA00916

PATIENT
  Age: 63 Year
  Sex: Female

DRUGS (4)
  1. DECADRON [Suspect]
     Indication: BRAIN OEDEMA
     Route: 048
     Dates: start: 20090715, end: 20091006
  2. DECADRON [Suspect]
     Route: 048
     Dates: start: 20091007
  3. DECADRON [Suspect]
     Route: 048
     Dates: start: 20090616, end: 20090629
  4. DECADRON [Suspect]
     Route: 048
     Dates: start: 20090630, end: 20090714

REACTIONS (1)
  - DEMENTIA [None]
